FAERS Safety Report 21314790 (Version 4)
Quarter: 2022Q3

REPORT INFORMATION
  Report Type: Spontaneous
  Country: FR (occurrence: FR)
  Receive Date: 20220909
  Receipt Date: 20220923
  Transmission Date: 20221027
  Serious: Yes (Hospitalization)
  Sender: FDA-Public Use
  Company Number: None

PATIENT
  Age: 47 Year
  Sex: Female
  Weight: 84 kg

DRUGS (9)
  1. PAXLOVID [Interacting]
     Active Substance: NIRMATRELVIR\RITONAVIR
     Indication: COVID-19 treatment
     Dosage: [PF-07321332 150 MG]/[RITONAVIR 100 MG]; 2X/DAY
     Route: 048
     Dates: start: 20220816, end: 20220818
  2. PANTOPRAZOLE [Interacting]
     Active Substance: PANTOPRAZOLE
     Dosage: 20 MG, 1X/DAY (QD)
     Route: 048
     Dates: start: 20220818, end: 20220818
  3. MYFORTIC [Interacting]
     Active Substance: MYCOPHENOLATE SODIUM
     Indication: Renal transplant
     Dosage: 2 DF, 1X/DAY (QD)
     Route: 048
     Dates: start: 20220818, end: 20220818
  4. TACROLIMUS [Interacting]
     Active Substance: TACROLIMUS
     Indication: Renal transplant
     Dosage: 9 MG, 1X/DAY (QD)
     Route: 048
     Dates: start: 20201030, end: 20220817
  5. CANDESARTAN CILEXETIL [Interacting]
     Active Substance: CANDESARTAN CILEXETIL
     Indication: Hypertension
     Dosage: 12 MG, 1X/DAY (QD)
     Route: 048
     Dates: start: 20220818, end: 20220818
  6. PRAVASTATIN SODIUM [Interacting]
     Active Substance: PRAVASTATIN SODIUM
     Indication: Hypertriglyceridaemia
     Dosage: 1 DF, 1X/DAY (QD)
     Route: 048
     Dates: start: 20210823, end: 20220818
  7. HYDROCHLOROTHIAZIDE [Interacting]
     Active Substance: HYDROCHLOROTHIAZIDE
     Indication: Hypertension
     Dosage: 12.5 MG, 1X/DAY (QD)
     Route: 048
     Dates: start: 20220818, end: 20220818
  8. NEBIVOLOL [Concomitant]
     Active Substance: NEBIVOLOL
     Dosage: UNK
  9. PREDNISONE [Concomitant]
     Active Substance: PREDNISONE
     Dosage: UNK

REACTIONS (4)
  - Potentiating drug interaction [Recovered/Resolved]
  - Acute kidney injury [Recovered/Resolved]
  - Rhabdomyolysis [Recovered/Resolved]
  - Lymphopenia [Unknown]

NARRATIVE: CASE EVENT DATE: 20220818
